FAERS Safety Report 18762215 (Version 1)
Quarter: 2021Q1

REPORT INFORMATION
  Report Type: Spontaneous
  Country: BR (occurrence: BR)
  Receive Date: 20210120
  Receipt Date: 20210120
  Transmission Date: 20210419
  Serious: Yes (Other)
  Sender: FDA-Public Use
  Company Number: NVSC2021BR010078

PATIENT
  Sex: Female

DRUGS (2)
  1. TIMOLOL MALEATE. [Suspect]
     Active Substance: TIMOLOL MALEATE
     Indication: EYE LUBRICATION THERAPY
     Dosage: UNK (5 ML)
     Route: 065
  2. LACRIMA PLUS (TEARS NATURALE II) [Suspect]
     Active Substance: DEXTRAN 70\HYPROMELLOSES
     Indication: EYE LUBRICATION THERAPY
     Dosage: UNK
     Route: 065

REACTIONS (5)
  - Product use in unapproved indication [Unknown]
  - Glaucoma [Unknown]
  - Superficial injury of eye [Unknown]
  - Product availability issue [Unknown]
  - Eye pruritus [Unknown]
